FAERS Safety Report 5028906-3 (Version None)
Quarter: 2006Q2

REPORT INFORMATION
  Report Type: 
  Country: None (occurrence: None)
  Receive Date: 20060619
  Receipt Date: 20060614
  Transmission Date: 20061013
  Serious: Yes (Other)
  Sender: FDA-Public Use
  Company Number: CA-GLAXOSMITHKLINE-A0609222A

PATIENT
  Age: 35 Year
  Sex: Female

DRUGS (7)
  1. FLOLAN [Suspect]
     Indication: DRUG USE FOR UNKNOWN INDICATION
     Dosage: 154MG SEE DOSAGE TEXT
     Route: 042
  2. K-DUR 10 [Concomitant]
  3. METOCLOPRAMIDE [Concomitant]
  4. OXAZEPAM [Concomitant]
  5. SPIRONOLACTONE [Concomitant]
  6. VIAGRA [Concomitant]
  7. WARFARIN SODIUM [Concomitant]

REACTIONS (17)
  - ALOPECIA [None]
  - BASEDOW'S DISEASE [None]
  - BLOOD THYROID STIMULATING HORMONE DECREASED [None]
  - CHANGE OF BOWEL HABIT [None]
  - DYSPNOEA [None]
  - EXOPHTHALMOS [None]
  - EYELID RETRACTION [None]
  - FATIGUE [None]
  - HEART RATE INCREASED [None]
  - HYPERTHYROIDISM [None]
  - OEDEMA [None]
  - PALPITATIONS [None]
  - TEMPERATURE INTOLERANCE [None]
  - THYROXINE INCREASED [None]
  - TREMOR [None]
  - TRI-IODOTHYRONINE INCREASED [None]
  - WEIGHT DECREASED [None]
